FAERS Safety Report 22186655 (Version 2)
Quarter: 2023Q2

REPORT INFORMATION
  Report Type: Report from Study
  Country: FR (occurrence: FR)
  Receive Date: 20230407
  Receipt Date: 20230425
  Transmission Date: 20230722
  Serious: Yes (Hospitalization)
  Sender: FDA-Public Use
  Company Number: FR-JNJFOC-20230374406

PATIENT
  Age: 63 Year
  Sex: Female
  Weight: 48 kg

DRUGS (15)
  1. TECLISTAMAB [Suspect]
     Active Substance: TECLISTAMAB
     Indication: Plasma cell myeloma
     Dosage: DATE OF MOST RECENT DOSE 20/MAR/2023
     Route: 058
     Dates: start: 20210706
  2. POMALIDOMIDE [Suspect]
     Active Substance: POMALIDOMIDE
     Indication: Plasma cell myeloma
     Route: 048
     Dates: start: 20210719, end: 20230312
  3. DARATUMUMAB [Concomitant]
     Active Substance: DARATUMUMAB
     Indication: Plasma cell myeloma
     Route: 058
     Dates: start: 20210705, end: 20230320
  4. CEFUROXIME SODIUM [Concomitant]
     Active Substance: CEFUROXIME SODIUM
     Indication: Rhinovirus infection
     Dosage: UNK
     Route: 048
     Dates: start: 20210727
  5. PEGFILGRASTIM [Concomitant]
     Active Substance: PEGFILGRASTIM
     Indication: Prophylaxis
     Dosage: QM
     Route: 058
     Dates: start: 20211011
  6. BUDESONIDE [Concomitant]
     Active Substance: BUDESONIDE
     Indication: Prophylaxis
     Route: 065
     Dates: start: 20221219
  7. PENTACARINAT [Concomitant]
     Active Substance: PENTAMIDINE ISETHIONATE
     Indication: Infection prophylaxis
     Dosage: QM
     Route: 055
     Dates: start: 20221219
  8. PRIVIGEN [Concomitant]
     Active Substance: HUMAN IMMUNOGLOBULIN G
     Indication: Hypogammaglobulinaemia
     Dosage: QM
     Route: 042
     Dates: start: 20221219
  9. FILGRASTIM [Concomitant]
     Active Substance: FILGRASTIM
     Indication: Neutropenia
     Route: 065
     Dates: start: 20230328, end: 20230331
  10. ERGOCALCIFEROL [Concomitant]
     Active Substance: ERGOCALCIFEROL
     Indication: Vitamin supplementation
     Dosage: Q3M
     Route: 065
  11. ELIQUIS [Concomitant]
     Active Substance: APIXABAN
     Indication: Prophylaxis
     Route: 048
  12. LEVOTHYROXINE [Concomitant]
     Active Substance: LEVOTHYROXINE
     Indication: Thyroid mass
     Route: 048
  13. VALACYCLOVIR HYDROCHLORIDE [Concomitant]
     Active Substance: VALACYCLOVIR HYDROCHLORIDE
     Indication: Antiviral prophylaxis
     Route: 048
     Dates: start: 20210715
  14. LOPERAMIDE [Concomitant]
     Active Substance: LOPERAMIDE
     Indication: Norovirus infection
     Route: 048
     Dates: start: 20230101
  15. RACECADOTRIL [Concomitant]
     Active Substance: RACECADOTRIL
     Indication: Norovirus infection
     Route: 048
     Dates: start: 20230101

REACTIONS (1)
  - Hypokalaemia [Recovered/Resolved]

NARRATIVE: CASE EVENT DATE: 20230327
